FAERS Safety Report 12646298 (Version 1)
Quarter: 2016Q3

REPORT INFORMATION
  Report Type: Spontaneous
  Country: CN (occurrence: CN)
  Receive Date: 20160812
  Receipt Date: 20160812
  Transmission Date: 20161109
  Serious: Yes (Hospitalization)
  Sender: FDA-Public Use
  Company Number: CN-009507513-1608CHN004500

PATIENT
  Age: 82 Year
  Sex: Male
  Weight: 67 kg

DRUGS (1)
  1. IMIPENEM AND CILASTATIN [Suspect]
     Active Substance: CILASTATIN SODIUM\IMIPENEM
     Indication: INFECTION
     Dosage: 0.5 G, TID
     Route: 041
     Dates: start: 20151219, end: 20151224

REACTIONS (3)
  - Language disorder [Recovering/Resolving]
  - Dysphoria [Recovering/Resolving]
  - Delirium [Recovering/Resolving]

NARRATIVE: CASE EVENT DATE: 20151220
